FAERS Safety Report 4383681-0 (Version None)
Quarter: 2004Q2

REPORT INFORMATION
  Report Type: 
  Country: None (occurrence: None)
  Receive Date: 20040623
  Receipt Date: 20040401
  Transmission Date: 20050107
  Serious: Yes (Other)
  Sender: FDA-Public Use
  Company Number: 111933

PATIENT
  Age: 69 Year
  Sex: Male
  Weight: 78 kg

DRUGS (6)
  1. AVODART [Suspect]
     Indication: BENIGN PROSTATIC HYPERPLASIA
     Dosage: .5MG PER DAY
     Route: 048
     Dates: start: 20040301, end: 20040306
  2. ISOPTIN TAB [Concomitant]
     Dosage: 120MG PER DAY
     Route: 048
  3. ZOCOR [Concomitant]
     Dosage: 10MG PER DAY
     Route: 048
  4. OMNIC [Concomitant]
     Dosage: .4MG PER DAY
     Route: 048
  5. ASPIRIN [Concomitant]
     Dosage: 100MG PER DAY
     Route: 048
  6. MAGNESIUM VERLA [Concomitant]
     Dosage: 121.5MG UNKNOWN
     Route: 048

REACTIONS (1)
  - EPISTAXIS [None]
